FAERS Safety Report 21177274 (Version 2)
Quarter: 2022Q3

REPORT INFORMATION
  Report Type: Spontaneous
  Country: US (occurrence: US)
  Receive Date: 20220805
  Receipt Date: 20220908
  Transmission Date: 20221027
  Serious: Yes (Other)
  Sender: FDA-Public Use
  Company Number: US-BAYER-2022A106241

PATIENT
  Sex: Female

DRUGS (1)
  1. KYLEENA [Suspect]
     Active Substance: LEVONORGESTREL
     Indication: Intra-uterine contraceptive device insertion
     Dosage: 17.5?G/DAY
     Route: 015
     Dates: start: 20200317

REACTIONS (8)
  - Abdominal pain lower [None]
  - Device dislocation [Not Recovered/Not Resolved]
  - Genital haemorrhage [None]
  - Abdominal pain [None]
  - Fatigue [None]
  - Alopecia [None]
  - Heavy menstrual bleeding [None]
  - Dysmenorrhoea [None]
